FAERS Safety Report 6663255-9 (Version None)
Quarter: 2010Q2

REPORT INFORMATION
  Report Type: 
  Country: None (occurrence: None)
  Receive Date: 20100401
  Receipt Date: 20100323
  Transmission Date: 20101027
  Serious: Yes (Life-Threatening, Hospitalization, Disabling)
  Sender: FDA-Public Use
  Company Number: GB-BAYER-201020329GPV

PATIENT
  Age: 79 Year
  Sex: Female
  Weight: 57 kg

DRUGS (6)
  1. CIPROFLOXACIN [Suspect]
     Indication: INFECTION
     Route: 048
     Dates: start: 20100113
  2. AMITRIPTYLINE [Concomitant]
  3. ATENOLOL [Concomitant]
  4. LOSARTAN POTASSIUM [Concomitant]
  5. LOSEC [Concomitant]
  6. SIMVASTATIN [Concomitant]

REACTIONS (1)
  - DIZZINESS [None]
